FAERS Safety Report 5827205-7 (Version None)
Quarter: 2008Q3

REPORT INFORMATION
  Report Type: 
  Country: None (occurrence: None)
  Receive Date: 20080730
  Receipt Date: 20071108
  Transmission Date: 20090109
  Serious: Yes (Death, Life-Threatening, Hospitalization, Other)
  Sender: FDA-Public Use
  Company Number: US-ABBOTT-06R-163-0328816-00

PATIENT
  Age: 20 Day
  Weight: 1.07 kg

DRUGS (1)
  1. SURVANTA INTRATRACHEAL SUSPENSION [Suspect]
     Indication: ACUTE RESPIRATORY DISTRESS SYNDROME

REACTIONS (3)
  - DEATH [None]
  - NECROSIS ISCHAEMIC [None]
  - NECROTISING ENTEROCOLITIS NEONATAL [None]
